FAERS Safety Report 18547507 (Version 14)
Quarter: 2025Q1

REPORT INFORMATION
  Report Type: Spontaneous
  Country: US (occurrence: US)
  Receive Date: 20201125
  Receipt Date: 20250108
  Transmission Date: 20250409
  Serious: Yes (Disabling, Other)
  Sender: PFIZER
  Company Number: US-PFIZER INC-2020463324

PATIENT
  Age: 49 Year
  Sex: Female

DRUGS (1)
  1. EUCRISA [Suspect]
     Active Substance: CRISABOROLE
     Dosage: APPLY TO AFFECTED AREA TWICE DAILY AS DIRECTED
     Route: 061

REACTIONS (9)
  - Epilepsy [Unknown]
  - Brain operation [Unknown]
  - Drug ineffective [Unknown]
  - Skin fissures [Not Recovered/Not Resolved]
  - Pain of skin [Unknown]
  - Dry skin [Not Recovered/Not Resolved]
  - Pruritus [Unknown]
  - Amnesia [Unknown]
  - Sensitivity to weather change [Unknown]
